FAERS Safety Report 20134170 (Version 2)
Quarter: 2022Q1

REPORT INFORMATION
  Report Type: Report from Study
  Country: BR (occurrence: BR)
  Receive Date: 20211201
  Receipt Date: 20220207
  Transmission Date: 20220423
  Serious: Yes (Hospitalization, Other)
  Sender: FDA-Public Use
  Company Number: BR-NOVARTISPH-NVSC2021BR268496

PATIENT
  Age: 69 Year
  Sex: Female

DRUGS (15)
  1. PACLITAXEL [Suspect]
     Active Substance: PACLITAXEL
     Indication: Invasive breast carcinoma
     Dosage: UNK
     Route: 065
     Dates: start: 201501, end: 201506
  2. ALPELISIB [Suspect]
     Active Substance: ALPELISIB
     Indication: Invasive breast carcinoma
     Dosage: 250 MG, QD
     Route: 065
     Dates: start: 202011
  3. ALPELISIB [Suspect]
     Active Substance: ALPELISIB
     Dosage: 200 MG, QD
     Route: 065
  4. GEMCITABINE [Suspect]
     Active Substance: GEMCITABINE
     Indication: Invasive breast carcinoma
     Dosage: UNK
     Route: 065
     Dates: start: 201812, end: 201907
  5. GEMCITABINE [Suspect]
     Active Substance: GEMCITABINE
     Dosage: UNK
     Route: 065
     Dates: start: 202003
  6. FULVESTRANT [Suspect]
     Active Substance: FULVESTRANT
     Indication: Invasive breast carcinoma
     Dosage: UNK
     Route: 065
     Dates: start: 201808
  7. DOXORUBICIN [Suspect]
     Active Substance: DOXORUBICIN
     Indication: Invasive breast carcinoma
     Dosage: UNK
     Route: 065
     Dates: start: 201501, end: 201506
  8. CAPECITABINE [Suspect]
     Active Substance: CAPECITABINE
     Indication: Invasive breast carcinoma
     Dosage: UNK
     Route: 065
     Dates: start: 201804, end: 201806
  9. CISPLATIN [Suspect]
     Active Substance: CISPLATIN
     Indication: Invasive breast carcinoma
     Dosage: UNK
     Route: 065
     Dates: start: 202003
  10. CYCLOPHOSPHAMIDE [Suspect]
     Active Substance: CYCLOPHOSPHAMIDE
     Indication: Invasive breast carcinoma
     Dosage: UNK
     Route: 065
     Dates: start: 201501
  11. CYCLOPHOSPHAMIDE [Suspect]
     Active Substance: CYCLOPHOSPHAMIDE
     Dosage: UNK
     Route: 048
     Dates: start: 201908, end: 202003
  12. CYCLOPHOSPHAMIDE [Suspect]
     Active Substance: CYCLOPHOSPHAMIDE
     Dosage: UNK
     Route: 065
     Dates: end: 202106
  13. EXEMESTANE [Concomitant]
     Active Substance: EXEMESTANE
     Indication: Product used for unknown indication
     Dosage: UNK
     Route: 065
     Dates: start: 201709
  14. DENOSUMAB [Concomitant]
     Active Substance: DENOSUMAB
     Indication: Product used for unknown indication
     Dosage: UNK
     Route: 065
     Dates: start: 201709
  15. PALBOCICLIB [Concomitant]
     Active Substance: PALBOCICLIB
     Indication: Product used for unknown indication
     Dosage: UNK
     Route: 065
     Dates: start: 201808

REACTIONS (5)
  - Diabetic ketoacidosis [Unknown]
  - Invasive breast carcinoma [Unknown]
  - Malignant neoplasm progression [Unknown]
  - Metastases to bone [Unknown]
  - Toxicity to various agents [Unknown]

NARRATIVE: CASE EVENT DATE: 20170901
